FAERS Safety Report 11024668 (Version 1)
Quarter: 2015Q2

REPORT INFORMATION
  Report Type: Spontaneous
  Country: US (occurrence: None)
  Receive Date: 20150413
  Receipt Date: 20150413
  Transmission Date: 20150821
  Serious: Yes (Disabling)
  Sender: FDA-Public Use
  Company Number: None

PATIENT
  Age: 68 Year
  Sex: Male

DRUGS (14)
  1. PROCRIT [Concomitant]
     Active Substance: ERYTHROPOIETIN
  2. ZOMETA [Concomitant]
     Active Substance: ZOLEDRONIC ACID
  3. ASPIRIN. [Concomitant]
     Active Substance: ASPIRIN
  4. BICALUTAMIDE. [Concomitant]
     Active Substance: BICALUTAMIDE
  5. OXYCODONE [Concomitant]
     Active Substance: OXYCODONE
  6. TAXOTERE [Concomitant]
     Active Substance: DOCETAXEL
  7. CALCIUM 500+D [Concomitant]
     Active Substance: CALCIUM\VITAMIN D
  8. FLOMAX [Concomitant]
     Active Substance: TAMSULOSIN HYDROCHLORIDE
  9. ATORVASTATIN [Concomitant]
     Active Substance: ATORVASTATIN
  10. UREA. [Concomitant]
     Active Substance: UREA
  11. LUPRON DEPOT [Concomitant]
     Active Substance: LEUPROLIDE ACETATE
  12. OXYCONTIN [Concomitant]
     Active Substance: OXYCODONE HYDROCHLORIDE
  13. ZYTIGA [Suspect]
     Active Substance: ABIRATERONE ACETATE
     Indication: PROSTATE CANCER
     Dosage: 4 TABLETS BID ORAL
     Route: 048
  14. PLAVIX [Concomitant]
     Active Substance: CLOPIDOGREL BISULFATE

REACTIONS (2)
  - Oedema peripheral [None]
  - Lymphoedema [None]

NARRATIVE: CASE EVENT DATE: 20150407
